FAERS Safety Report 17929406 (Version 1)
Quarter: 2020Q2

REPORT INFORMATION
  Report Type: Spontaneous
  Country: US (occurrence: US)
  Receive Date: 20200623
  Receipt Date: 20200623
  Transmission Date: 20200714
  Serious: No
  Sender: FDA-Public Use
  Company Number: US-ALLERGAN-1918941US

PATIENT
  Age: 43 Year
  Sex: Female

DRUGS (4)
  1. KYBELLA [Suspect]
     Active Substance: DEOXYCHOLIC ACID
     Dosage: 2 VIALS, SINGLE
     Route: 058
     Dates: start: 20180926, end: 20180926
  2. KYBELLA [Suspect]
     Active Substance: DEOXYCHOLIC ACID
     Indication: FAT TISSUE INCREASED
     Dosage: 2 VIALS, SINGLE
     Route: 058
     Dates: start: 20190227, end: 20190227
  3. KYBELLA [Suspect]
     Active Substance: DEOXYCHOLIC ACID
     Dosage: 2 VIALS, SINGLE
     Route: 058
     Dates: start: 20171020, end: 20171020
  4. KYBELLA [Suspect]
     Active Substance: DEOXYCHOLIC ACID
     Dosage: 2 VIALS, SINGLE
     Route: 058
     Dates: start: 20180413, end: 20180413

REACTIONS (1)
  - Drug ineffective [Unknown]
